FAERS Safety Report 7196835-5 (Version None)
Quarter: 2010Q4

REPORT INFORMATION
  Report Type: 
  Country: None (occurrence: None)
  Receive Date: 20101223
  Receipt Date: 20101110
  Transmission Date: 20110411
  Serious: No
  Sender: FDA-Public Use
  Company Number: US-AMGEN-KDL444049

PATIENT

DRUGS (3)
  1. ENBREL [Suspect]
     Indication: RHEUMATOID ARTHRITIS
     Dosage: 50 MG, QWK
     Route: 058
     Dates: start: 20100911
  2. ENBREL [Suspect]
     Indication: PROSTATIC SPECIFIC ANTIGEN
     Dates: start: 20100905, end: 20101107
  3. ENBREL [Suspect]
     Indication: PSORIATIC ARTHROPATHY

REACTIONS (4)
  - DEVICE MALFUNCTION [None]
  - INJECTION SITE PAIN [None]
  - PNEUMONIA [None]
  - RHEUMATOID ARTHRITIS [None]
